FAERS Safety Report 10245234 (Version 6)
Quarter: 2015Q1

REPORT INFORMATION
  Report Type: Report from Study
  Country: US (occurrence: US)
  Receive Date: 20140618
  Receipt Date: 20150318
  Transmission Date: 20150720
  Serious: Yes (Hospitalization)
  Sender: FDA-Public Use
  Company Number: US-SA-2014SA078662

PATIENT
  Age: 68 Year
  Sex: Female

DRUGS (16)
  1. AUBAGIO [Suspect]
     Active Substance: TERIFLUNOMIDE
     Indication: MULTIPLE SCLEROSIS
     Route: 048
     Dates: start: 20140522, end: 20140616
  2. ZOLPIDEM [Concomitant]
     Active Substance: ZOLPIDEM\ZOLPIDEM TARTRATE
     Dosage: FREQUENCY WAS CAPTURED AS ONE NIGHTLY AS NEEDED
  3. METOPROLOL [Concomitant]
     Active Substance: METOPROLOL
  4. VITAMIN D [Concomitant]
     Active Substance: CHOLECALCIFEROL
  5. CITALOPRAM [Concomitant]
     Active Substance: CITALOPRAM HYDROBROMIDE
  6. BIOTENE [Concomitant]
     Active Substance: SODIUM MONOFLUOROPHOSPHATE
     Indication: DRY MOUTH
     Dosage: AS NEEDED
  7. AUBAGIO [Suspect]
     Active Substance: TERIFLUNOMIDE
     Indication: MULTIPLE SCLEROSIS
     Route: 048
     Dates: start: 20140619
  8. HYDROCHLOROTHIAZIDE. [Concomitant]
     Active Substance: HYDROCHLOROTHIAZIDE
  9. HYDROCODONE [Concomitant]
     Active Substance: HYDROCODONE
  10. OXYBUTYNIN [Concomitant]
     Active Substance: OXYBUTYNIN
  11. CALCIUM CITRATE [Concomitant]
     Active Substance: CALCIUM CITRATE
  12. BUPROPION [Concomitant]
     Active Substance: BUPROPION
  13. OMEPRAZOLE. [Concomitant]
     Active Substance: OMEPRAZOLE
  14. LEVOTHYROXINE [Concomitant]
     Active Substance: LEVOTHYROXINE
  15. MELOXICAM. [Concomitant]
     Active Substance: MELOXICAM
  16. ACETAMINOPHEN. [Concomitant]
     Active Substance: ACETAMINOPHEN
     Indication: PAIN

REACTIONS (5)
  - Rash [Recovering/Resolving]
  - Erythema [Recovered/Resolved]
  - Rash [Recovered/Resolved]
  - Hypoaesthesia [Unknown]
  - Hip fracture [Unknown]

NARRATIVE: CASE EVENT DATE: 20140606
